FAERS Safety Report 9795833 (Version 2)
Quarter: 2014Q2

REPORT INFORMATION
  Report Type: Report from Study
  Country: US (occurrence: US)
  Receive Date: 20140103
  Receipt Date: 20140417
  Transmission Date: 20141212
  Serious: Yes (Death, Other)
  Sender: FDA-Public Use
  Company Number: US-ASTELLAS-2013US013601

PATIENT
  Age: 74 Year
  Sex: Male

DRUGS (1)
  1. ERLOTINIB [Suspect]
     Indication: LUNG NEOPLASM MALIGNANT
     Route: 048
     Dates: start: 201307, end: 201309

REACTIONS (1)
  - Malignant neoplasm progression [Fatal]
